FAERS Safety Report 7915170-8 (Version None)
Quarter: 2011Q4

REPORT INFORMATION
  Report Type: 
  Country: None (occurrence: None)
  Receive Date: 20111115
  Receipt Date: 20111102
  Transmission Date: 20120403
  Serious: Yes (Hospitalization, Other)
  Sender: FDA-Public Use
  Company Number: PHHO2011US16520

PATIENT
  Sex: Female
  Weight: 99.4 kg

DRUGS (12)
  1. MYFORTIC [Concomitant]
     Indication: IMMUNOSUPPRESSION
     Dosage: 720 MG, BID
     Route: 048
     Dates: start: 20110914
  2. TACROLIMUS [Suspect]
     Indication: RENAL TRANSPLANT
     Dosage: 2 MG, BID
     Dates: start: 20110826, end: 20110829
  3. TACROLIMUS [Suspect]
     Dosage: 2.5 MG, BID
     Dates: start: 20110913, end: 20110926
  4. AMLODIPINE [Concomitant]
     Indication: HYPERTENSION
     Dosage: 10 MG, QD
     Route: 048
     Dates: start: 20061004
  5. BACTRIM [Concomitant]
     Indication: ANTIBIOTIC PROPHYLAXIS
     Dosage: 1 DF, UNK
     Dates: start: 20110826
  6. ZOLOFT [Concomitant]
     Indication: DEPRESSION
     Dosage: 50 MG, UNK
     Route: 048
  7. MYCELEX [Concomitant]
     Indication: PROPHYLAXIS
  8. MYCOPHENOLATE MOFETIL (CELLCEPT) [Concomitant]
     Indication: IMMUNOSUPPRESSION
     Dosage: 1000 MG, BID
     Dates: start: 20110829, end: 20110913
  9. METOPROLOL SUCCINATE [Concomitant]
     Indication: HYPERTENSION
     Dosage: 20 MG, QD
     Route: 048
     Dates: start: 20110607
  10. VALCYTE [Concomitant]
     Indication: PROPHYLAXIS
     Dosage: UNK
  11. CERTICAN [Suspect]
     Indication: RENAL TRANSPLANT
     Dosage: 0.75 MG, BID
     Route: 048
     Dates: start: 20110826, end: 20110829
  12. ZOCOR [Concomitant]
     Indication: HYPERLIPIDAEMIA
     Dosage: 20 MG, QD
     Route: 048
     Dates: start: 20040921

REACTIONS (2)
  - DEEP VEIN THROMBOSIS [None]
  - IMPAIRED HEALING [None]
